FAERS Safety Report 19661397 (Version 1)
Quarter: 2021Q3

REPORT INFORMATION
  Report Type: Spontaneous
  Country: US (occurrence: US)
  Receive Date: 20210805
  Receipt Date: 20210805
  Transmission Date: 20211014
  Serious: Yes (Other)
  Sender: FDA-Public Use
  Company Number: US-BRAINTREE LABORATORIES, INC.-2021BTE00636

PATIENT
  Age: 87 Year
  Sex: Male
  Weight: 74.84 kg

DRUGS (1)
  1. SUPREP BOWEL PREP [Suspect]
     Active Substance: MAGNESIUM SULFATE\POTASSIUM SULFATE\SODIUM SULFATE
     Indication: LITHOTRIPSY
     Dosage: 2 X 6 OZ. BOTTLE, 1X
     Route: 048
     Dates: start: 20200904, end: 20200905

REACTIONS (10)
  - Peripheral swelling [Unknown]
  - Taste disorder [Not Recovered/Not Resolved]
  - Parosmia [Not Recovered/Not Resolved]
  - Urticaria [Unknown]
  - Memory impairment [Not Recovered/Not Resolved]
  - Rash [Unknown]
  - Weight decreased [Recovering/Resolving]
  - Visual impairment [Not Recovered/Not Resolved]
  - Pruritus [Unknown]
  - Off label use [Recovered/Resolved]

NARRATIVE: CASE EVENT DATE: 2020
